FAERS Safety Report 9733412 (Version 1)
Quarter: 2013Q4

REPORT INFORMATION
  Report Type: Spontaneous
  Country: US (occurrence: None)
  Receive Date: 20131204
  Receipt Date: 20131204
  Transmission Date: 20140711
  Serious: Yes (Other)
  Sender: FDA-Public Use
  Company Number: None

PATIENT
  Sex: Male
  Weight: 79.38 kg

DRUGS (9)
  1. OXYCODONE-APAP [Suspect]
     Dosage: 1 TAB EVERY 4 HOURS PRN?RX FILLED ON 11/13/13 IN OUR PHARM (~ 10 YEARS ACCORDING TO PATIENT
  2. OXYCODONE-APAP [Suspect]
     Indication: BACK PAIN
     Dosage: 1 TAB EVERY 4 HOURS PRN?RX FILLED ON 11/13/13 IN OUR PHARM (~ 10 YEARS ACCORDING TO PATIENT
  3. PLAVIX [Concomitant]
  4. METOPROLOL [Concomitant]
  5. SIMVASTATIN [Concomitant]
  6. NEXIUM [Concomitant]
  7. ASPIRIN [Concomitant]
  8. SPIRIVA [Concomitant]
  9. PULMICORT [Concomitant]

REACTIONS (3)
  - Constipation [None]
  - Dehydration [None]
  - Dry mouth [None]
